FAERS Safety Report 4939458-8 (Version None)
Quarter: 2006Q1

REPORT INFORMATION
  Report Type: 
  Country: None (occurrence: None)
  Receive Date: 20060306
  Receipt Date: 20060217
  Transmission Date: 20060701
  Serious: Yes (Hospitalization)
  Sender: FDA-Public Use
  Company Number: FR200602003703

PATIENT
  Age: 77 Year
  Sex: Female

DRUGS (6)
  1. FORTEO [Suspect]
     Indication: OSTEOPOROSIS
     Dosage: 20 UG, DAILY (1/D), SUBCUTANEOUS
     Route: 058
     Dates: start: 20040406, end: 20051206
  2. FORTEO [Concomitant]
  3. LEVOTHYROXINE SODIUM [Concomitant]
  4. IRBESARTAN [Concomitant]
  5. FORADIL [Concomitant]
  6. MORPHINE SULFATE [Concomitant]

REACTIONS (1)
  - EPILEPSY [None]
